FAERS Safety Report 23920393 (Version 1)
Quarter: 2024Q2

REPORT INFORMATION
  Report Type: Spontaneous
  Country: US (occurrence: None)
  Receive Date: 20240530
  Receipt Date: 20240530
  Transmission Date: 20240716
  Serious: No
  Sender: FDA-Public Use
  Company Number: None

PATIENT

DRUGS (2)
  1. PYLERA [Suspect]
     Active Substance: BISMUTH SUBCITRATE POTASSIUM\METRONIDAZOLE\TETRACYCLINE HYDROCHLORIDE
  2. AMOXICILLIN [Suspect]
     Active Substance: AMOXICILLIN

REACTIONS (22)
  - Diarrhoea [None]
  - Insomnia [None]
  - Abdominal distension [None]
  - Skin burning sensation [None]
  - Pruritus [None]
  - Vision blurred [None]
  - Headache [None]
  - Dizziness [None]
  - Nausea [None]
  - Faeces discoloured [None]
  - Vulvovaginal burning sensation [None]
  - Vulvovaginal pruritus [None]
  - Eructation [None]
  - Dry mouth [None]
  - Abdominal discomfort [None]
  - Pain [None]
  - Erythema [None]
  - Abdominal pain upper [None]
  - Abdominal discomfort [None]
  - Dysbiosis [None]
  - Intestinal barrier dysfunction [None]
  - Therapy non-responder [None]

NARRATIVE: CASE EVENT DATE: 20180628
